FAERS Safety Report 5319582-0 (Version None)
Quarter: 2007Q2

REPORT INFORMATION
  Report Type: 
  Country: None (occurrence: None)
  Receive Date: 20070503
  Receipt Date: 20070417
  Transmission Date: 20071010
  Serious: Yes (Death, Other)
  Sender: FDA-Public Use
  Company Number: 149418ISR

PATIENT
  Age: 60 Year
  Sex: Male

DRUGS (2)
  1. FLUOXETINE [Suspect]
     Indication: DEPRESSION
     Dates: start: 19900101
  2. PAROXETINE [Suspect]
     Indication: ANXIETY DISORDER
     Dosage: (20 MG)

REACTIONS (5)
  - AGITATION [None]
  - COMPLETED SUICIDE [None]
  - HALLUCINATION [None]
  - HOMICIDE [None]
  - RESTLESSNESS [None]
